FAERS Safety Report 6644765-7 (Version None)
Quarter: 2010Q1

REPORT INFORMATION
  Report Type: 
  Country: None (occurrence: None)
  Receive Date: 20100318
  Receipt Date: 20100318
  Transmission Date: 20100710
  Serious: No
  Sender: FDA-Public Use
  Company Number: None

PATIENT
  Age: 63 Year
  Sex: Male
  Weight: 85.28 kg

DRUGS (1)
  1. PACLITAXEL [Suspect]
     Indication: BLADDER CANCER
     Dosage: 168 MG QWEEK IV
     Route: 042
     Dates: start: 20100310, end: 20100317

REACTIONS (7)
  - ANAPHYLACTIC REACTION [None]
  - BLOOD PRESSURE INCREASED [None]
  - ERYTHEMA [None]
  - FEELING HOT [None]
  - HOT FLUSH [None]
  - HYPERHIDROSIS [None]
  - INFUSION RELATED REACTION [None]
